FAERS Safety Report 5415171-8 (Version None)
Quarter: 2007Q3

REPORT INFORMATION
  Report Type: 
  Country: None (occurrence: None)
  Receive Date: 20070815
  Receipt Date: 20070711
  Transmission Date: 20080115
  Serious: No
  Sender: FDA-Public Use
  Company Number: A0663359A

PATIENT
  Age: 86 Year
  Sex: Female

DRUGS (8)
  1. COREG CR [Suspect]
     Dosage: 25MG TWICE PER DAY
     Route: 048
     Dates: start: 20061001
  2. COUMADIN [Concomitant]
  3. ISOSORBIDE DINITRATE [Concomitant]
  4. MICARDIS [Concomitant]
  5. UNKNOWN MEDICATION [Concomitant]
  6. ALLOPURINOL [Concomitant]
  7. AMIODARONE HCL [Concomitant]
  8. PREDNISONE TAB [Concomitant]

REACTIONS (5)
  - ASTHENIA [None]
  - DYSPNOEA [None]
  - FATIGUE [None]
  - HEART RATE DECREASED [None]
  - MUSCULAR WEAKNESS [None]
